FAERS Safety Report 9243451 (Version 3)
Quarter: 2013Q2

REPORT INFORMATION
  Report Type: Report from Study
  Country: DE (occurrence: DE)
  Receive Date: 20130422
  Receipt Date: 20130617
  Transmission Date: 20140414
  Serious: Yes (Death, Hospitalization)
  Sender: FDA-Public Use
  Company Number: DE-BRISTOL-MYERS SQUIBB COMPANY-18698282

PATIENT
  Age: 71 Year
  Sex: Male
  Weight: 74 kg

DRUGS (7)
  1. ERBITUX SOLN FOR INF [Suspect]
     Indication: COLORECTAL CANCER METASTATIC
     Dosage: 14JAN-04FEB13-250MG/M2-1 IN 1WK, 21D?18FEB13-19FEB13: 250MG/M2, 1/W
     Route: 042
     Dates: start: 20130107, end: 20130228
  2. 5-FLUOROURACIL [Concomitant]
     Indication: COLORECTAL CANCER METASTATIC
     Route: 042
     Dates: start: 20121217, end: 20130219
  3. OXALIPLATIN [Concomitant]
     Indication: COLORECTAL CANCER METASTATIC
     Route: 042
     Dates: start: 20121217, end: 20130219
  4. FOLINIC ACID [Concomitant]
     Indication: COLORECTAL CANCER METASTATIC
     Route: 042
     Dates: start: 20121217, end: 20130219
  5. ANTIHISTAMINE DRUGS [Concomitant]
     Indication: PREMEDICATION
     Dosage: 7-7JAN13?14-14JAN13
     Dates: start: 20130107, end: 20130114
  6. CORTICOSTEROID [Concomitant]
     Indication: PREMEDICATION
     Route: 042
     Dates: start: 20130107, end: 20130107
  7. GRANISETRON [Concomitant]
     Indication: PREMEDICATION
     Route: 042
     Dates: start: 20130107, end: 20130107

REACTIONS (6)
  - Renal failure [Fatal]
  - Sepsis [Fatal]
  - Pneumonia [Fatal]
  - Decreased appetite [Unknown]
  - General physical health deterioration [Unknown]
  - Back pain [Unknown]
